FAERS Safety Report 8507118-2 (Version None)
Quarter: 2012Q2

REPORT INFORMATION
  Report Type: 
  Country: None (occurrence: None)
  Receive Date: 20120629
  Receipt Date: 20120614
  Transmission Date: 20120825
  Serious: Yes (Hospitalization)
  Sender: FDA-Public Use
  Company Number: DSA_57986_2012

PATIENT
  Age: 91 Year
  Sex: Male

DRUGS (4)
  1. DIGOXIN [Suspect]
     Indication: MYOCARDIAL DEPRESSION
     Dosage: (DF)
     Dates: end: 20120228
  2. ISOPTIN [Suspect]
     Indication: MYOCARDIAL DEPRESSION
     Dosage: (DF)
     Dates: end: 20120228
  3. ENALAPRIL MALEATE [Suspect]
     Indication: MYOCARDIAL DEPRESSION
     Dosage: (DF ORAL)
     Route: 048
     Dates: end: 20120228
  4. CLINDAMYCIN HYDROCHLORIDE [Suspect]
     Indication: ENTEROCOLITIS
     Dosage: (DF ORAL)
     Route: 048
     Dates: start: 20120401

REACTIONS (3)
  - PSEUDOMEMBRANOUS COLITIS [None]
  - ATRIOVENTRICULAR BLOCK [None]
  - ANALGESIC DRUG LEVEL INCREASED [None]
